FAERS Safety Report 19920941 (Version 1)
Quarter: 2021Q4

REPORT INFORMATION
  Report Type: Spontaneous
  Country: US (occurrence: US)
  Receive Date: 20211005
  Receipt Date: 20211005
  Transmission Date: 20220303
  Serious: No
  Sender: FDA-Public Use
  Company Number: US-ADAMAS PHARMA, LLC-2021ADA00877

PATIENT
  Age: 75 Year
  Sex: Male
  Weight: 58.96 kg

DRUGS (9)
  1. GOCOVRI [Suspect]
     Active Substance: AMANTADINE
     Indication: Dyskinesia
     Dosage: 137 MG, 1X/DAY, AT BEDTIME
     Route: 048
     Dates: start: 202104, end: 202104
  2. GOCOVRI [Suspect]
     Active Substance: AMANTADINE
     Dosage: 274 MG, 1X/DAY, AT BEDTIME
     Route: 048
     Dates: start: 202104, end: 202104
  3. CARBIDOPA\LEVODOPA [Concomitant]
     Active Substance: CARBIDOPA\LEVODOPA
  4. AMLODIPINE [Concomitant]
     Active Substance: AMLODIPINE BESYLATE
  5. ATORVASTATIN [Concomitant]
     Active Substance: ATORVASTATIN
  6. BENAZEPRIL [Concomitant]
     Active Substance: BENAZEPRIL HYDROCHLORIDE
  7. FINASTERIDE [Concomitant]
     Active Substance: FINASTERIDE
  8. GABAPENTIN [Concomitant]
     Active Substance: GABAPENTIN
  9. SEVERAL OTHER MEDICATIONS (UNSPECIFIED) [Concomitant]

REACTIONS (5)
  - Tinnitus [Recovered/Resolved]
  - Muscle rigidity [Unknown]
  - Tremor [Unknown]
  - Hallucination, visual [Unknown]
  - Anxiety [Unknown]

NARRATIVE: CASE EVENT DATE: 20210401
